FAERS Safety Report 10493525 (Version 2)
Quarter: 2014Q4

REPORT INFORMATION
  Report Type: Spontaneous
  Country: US (occurrence: US)
  Receive Date: 20141002
  Receipt Date: 20141124
  Transmission Date: 20150528
  Serious: No
  Sender: FDA-Public Use
  Company Number: US-GLAXOSMITHKLINE-A1085151A

PATIENT
  Age: 65 Year
  Sex: Female

DRUGS (2)
  1. NEBULIZER [Concomitant]
     Active Substance: UNSPECIFIED INGREDIENT
  2. ADVAIR DISKUS [Suspect]
     Active Substance: FLUTICASONE PROPIONATE\SALMETEROL XINAFOATE
     Indication: ASTHMA
     Dosage: 1 PUFF(S), BID
     Dates: start: 2002

REACTIONS (2)
  - Dyspnoea [Recovered/Resolved with Sequelae]
  - Product quality issue [Unknown]

NARRATIVE: CASE EVENT DATE: 20140810
